FAERS Safety Report 4604135-X (Version None)
Quarter: 2005Q1

REPORT INFORMATION
  Report Type: 
  Country: None (occurrence: None)
  Receive Date: 20050309
  Receipt Date: 20050309
  Transmission Date: 20050727
  Serious: Yes (Hospitalization, Other)
  Sender: FDA-Public Use
  Company Number: None

PATIENT
  Age: 64 Year
  Sex: Male
  Weight: 64.6376 kg

DRUGS (8)
  1. VISIPAQUE [Suspect]
     Indication: SCAN WITH CONTRAST
     Dosage: 50 ML IV OTO
     Route: 042
     Dates: start: 20041202
  2. TOPROL-XL [Concomitant]
  3. LIPITOR [Concomitant]
  4. NORVASC [Concomitant]
  5. PLAVIX [Concomitant]
  6. SOSORBIDE [Concomitant]
  7. MUCOMYST [Concomitant]
  8. XYLOCAINE [Concomitant]

REACTIONS (10)
  - APNOEA [None]
  - CONTRAST MEDIA REACTION [None]
  - DEPRESSED LEVEL OF CONSCIOUSNESS [None]
  - DYSPNOEA [None]
  - FLUSHING [None]
  - HYPERHIDROSIS [None]
  - OEDEMA [None]
  - RASH GENERALISED [None]
  - URTICARIA [None]
  - VOMITING [None]
